FAERS Safety Report 8153306-7 (Version None)
Quarter: 2012Q1

REPORT INFORMATION
  Report Type: 
  Country: None (occurrence: None)
  Receive Date: 20120221
  Receipt Date: 20120208
  Transmission Date: 20120608
  Serious: Yes (Hospitalization)
  Sender: FDA-Public Use
  Company Number: JP-ELI_LILLY_AND_COMPANY-JP201111000354

PATIENT
  Age: 75 Year
  Sex: Male

DRUGS (2)
  1. ANTIHYPERTENSIVES [Concomitant]
     Indication: HYPERTENSION
     Route: 048
  2. ZYPREXA [Suspect]
     Indication: SCHIZOPHRENIA
     Dosage: 1 MG, UNK
     Route: 048

REACTIONS (4)
  - DYSPHAGIA [None]
  - ASTHENIA [None]
  - FALL [None]
  - UNDERDOSE [None]
